FAERS Safety Report 25528491 (Version 1)
Quarter: 2025Q3

REPORT INFORMATION
  Report Type: Spontaneous
  Country: EU (occurrence: EU)
  Receive Date: 20250708
  Receipt Date: 20250708
  Transmission Date: 20251021
  Serious: Yes (Death)
  Sender: EMD SERONO INC
  Company Number: EU-Merck Healthcare KGaA-2025031939

PATIENT
  Age: 67 Year
  Sex: Male

DRUGS (1)
  1. BAVENCIO [Suspect]
     Active Substance: AVELUMAB
     Indication: Product used for unknown indication
     Dates: start: 202206

REACTIONS (2)
  - Fall [Fatal]
  - Head injury [Fatal]
